FAERS Safety Report 7868899-4 (Version None)
Quarter: 2011Q4

REPORT INFORMATION
  Report Type: 
  Country: None (occurrence: None)
  Receive Date: 20111026
  Receipt Date: 20111026
  Transmission Date: 20120403
  Serious: Yes (Hospitalization)
  Sender: FDA-Public Use
  Company Number: None

PATIENT
  Age: 59 Year
  Sex: Male
  Weight: 48.5 kg

DRUGS (1)
  1. ERTAPENEM [Suspect]
     Dosage: 1 GM, EVERY DAY, IV
     Route: 042
     Dates: start: 20101207, end: 20101209

REACTIONS (1)
  - RASH [None]
